FAERS Safety Report 17391041 (Version 4)
Quarter: 2020Q3

REPORT INFORMATION
  Report Type: Report from Study
  Country: None (occurrence: TR)
  Receive Date: 20200207
  Receipt Date: 20200926
  Transmission Date: 20201102
  Serious: Yes (Death, Hospitalization)
  Sender: FDA-Public Use
  Company Number: TR-ABBVIE-20K-161-3264076-00

PATIENT
  Age: 63 Year
  Sex: Male

DRUGS (7)
  1. DUODOPA [Suspect]
     Active Substance: CARBIDOPA\LEVODOPA
     Indication: PARKINSON^S DISEASE
     Dosage: MORNING DOSE(ML):4.80 CONTINUES DOSE(ML):4.80 EXTRA DOSE(ML):1.00
     Route: 050
     Dates: start: 20151116
  2. FLUDEX?SR [Concomitant]
     Active Substance: INDAPAMIDE
     Indication: HYPERTENSION
     Route: 048
     Dates: start: 2015
  3. RIVOTRIL [Concomitant]
     Active Substance: CLONAZEPAM
     Indication: HALLUCINATION
     Dosage: 1X5 DROP
     Route: 048
  4. VIRENTE [Concomitant]
     Indication: HEPATITIS B
     Route: 048
     Dates: start: 2000
  5. DUODOPA [Suspect]
     Active Substance: CARBIDOPA\LEVODOPA
  6. REDEPRA [Concomitant]
     Indication: DEPRESSION
     Route: 048
  7. VIREAD [Concomitant]
     Active Substance: TENOFOVIR DISOPROXIL FUMARATE
     Indication: HEPATITIS B
     Route: 048
     Dates: start: 2000

REACTIONS (3)
  - Cerebral haemorrhage [Fatal]
  - Depressed level of consciousness [Unknown]
  - Headache [Unknown]

NARRATIVE: CASE EVENT DATE: 20200101
